FAERS Safety Report 7328042-7 (Version None)
Quarter: 2011Q1

REPORT INFORMATION
  Report Type: 
  Country: None (occurrence: None)
  Receive Date: 20110303
  Receipt Date: 20110225
  Transmission Date: 20110831
  Serious: Yes (Death, Other)
  Sender: FDA-Public Use
  Company Number: JP-ASTELLAS-2011JP000979

PATIENT
  Sex: Male
  Weight: 37 kg

DRUGS (19)
  1. HAPTOGLOBINS [Concomitant]
     Dosage: 2000 IU, UID/QD
     Route: 041
     Dates: start: 20090225, end: 20090226
  2. MINOCYCLINE HCL [Concomitant]
     Indication: SEPSIS
     Dosage: 70 MG, BID
     Route: 041
     Dates: start: 20090309, end: 20090312
  3. ITRIZOLE [Concomitant]
     Dosage: 9.5 ML, BID
     Route: 048
     Dates: start: 20090219, end: 20090318
  4. MEROPEN [Concomitant]
     Indication: SEPSIS
     Dosage: 500 MG, BID
     Route: 041
     Dates: start: 20090309, end: 20090309
  5. METHOTREXATE [Suspect]
     Indication: PREMEDICATION
     Dosage: 9.7 MG, UID/QD
     Route: 042
     Dates: start: 20090227, end: 20090304
  6. ZOVIRAX [Concomitant]
     Dosage: 200 MG, TID
     Route: 048
     Dates: start: 20090226, end: 20090318
  7. BROACT [Concomitant]
     Dosage: 1000 MG, TID
     Route: 041
     Dates: start: 20090213, end: 20090308
  8. FLUDARA [Concomitant]
     Dosage: 23 MG, UID/QD
     Route: 041
     Dates: start: 20090217, end: 20090222
  9. FUNGUARD [Concomitant]
     Dosage: UNK
     Route: 041
     Dates: start: 20090312, end: 20090319
  10. GATIFLOXACIN [Concomitant]
     Dosage: 100 MG, BID
     Route: 048
     Dates: start: 20090219, end: 20090318
  11. ZOVIRAX [Concomitant]
     Dosage: 250 MG, TID
     Route: 041
     Dates: start: 20090312, end: 20090319
  12. ZYVOX [Concomitant]
     Dosage: 400 MG, UID/QD
     Route: 041
     Dates: start: 20090313, end: 20090319
  13. URSO 250 [Concomitant]
     Dosage: 100 MG, TID
     Route: 048
     Dates: start: 20090217, end: 20090318
  14. LYMPHOGLOBULINE [Concomitant]
     Dosage: 370 MG, UID/QD
     Route: 041
     Dates: start: 20090223, end: 20090224
  15. AMBISOME [Concomitant]
     Dosage: 200 MG, UID/QD
     Route: 041
     Dates: start: 20090314, end: 20090319
  16. PROGRAF [Suspect]
     Indication: PREMEDICATION
     Dosage: 0.45 MG, CONTINUOUS
     Route: 041
     Dates: start: 20090225, end: 20090315
  17. SOLU-MEDROL [Suspect]
     Indication: PREMEDICATION
     Dosage: 18 MG, BID
     Route: 041
     Dates: start: 20090227, end: 20090319
  18. ALKERAN [Concomitant]
     Dosage: 90 MG, UID/QD
     Route: 041
     Dates: start: 20090222, end: 20090222
  19. BAKTAR [Concomitant]
     Dosage: 4 G, 3XWEEKLY
     Route: 048
     Dates: start: 20080328, end: 20090318

REACTIONS (34)
  - SEPSIS [None]
  - BLOOD BICARBONATE DECREASED [None]
  - BLOOD BILIRUBIN UNCONJUGATED INCREASED [None]
  - CORYNEBACTERIUM TEST POSITIVE [None]
  - NODULE [None]
  - FUSARIUM INFECTION [None]
  - PO2 DECREASED [None]
  - PROTEIN TOTAL DECREASED [None]
  - BLOOD LACTATE DEHYDROGENASE INCREASED [None]
  - RASH [None]
  - BLOOD BLISTER [None]
  - ACTIVATED PARTIAL THROMBOPLASTIN TIME PROLONGED [None]
  - BLOOD GLUCOSE INCREASED [None]
  - NEUTROPENIA [None]
  - MYALGIA [None]
  - BLOOD FIBRINOGEN INCREASED [None]
  - FIBRIN DEGRADATION PRODUCTS INCREASED [None]
  - BLOOD BILIRUBIN INCREASED [None]
  - SYSTEMIC MYCOSIS [None]
  - RENAL IMPAIRMENT [None]
  - BLOOD PH DECREASED [None]
  - WHITE BLOOD CELL COUNT DECREASED [None]
  - PLATELET COUNT DECREASED [None]
  - ANTITHROMBIN III DECREASED [None]
  - BLOOD ALBUMIN DECREASED [None]
  - BLOOD CREATINE PHOSPHOKINASE INCREASED [None]
  - SKIN FISSURES [None]
  - MULTI-ORGAN FAILURE [None]
  - INFECTION SUSCEPTIBILITY INCREASED [None]
  - FIBRIN D DIMER INCREASED [None]
  - CARDIO-RESPIRATORY ARREST [None]
  - PURPURA [None]
  - HAEMOGLOBIN DECREASED [None]
  - BLOOD ALKALINE PHOSPHATASE INCREASED [None]
